FAERS Safety Report 17255494 (Version 48)
Quarter: 2022Q1

REPORT INFORMATION
  Report Type: Spontaneous
  Country: AU (occurrence: AU)
  Receive Date: 20200110
  Receipt Date: 20220211
  Transmission Date: 20220423
  Serious: Yes (Hospitalization, Other)
  Sender: FDA-Public Use
  Company Number: AU-BIOGEN-2019BI00795510

PATIENT
  Sex: Female

DRUGS (24)
  1. TYSABRI [Suspect]
     Active Substance: NATALIZUMAB
     Indication: Multiple sclerosis
     Dosage: INFUSED OVER 1 HOUR
     Route: 042
     Dates: start: 20190917
  2. TYSABRI [Suspect]
     Active Substance: NATALIZUMAB
     Dosage: INFUSED OVER 1 HOUR
     Route: 042
     Dates: start: 20190917, end: 20200513
  3. TYSABRI [Suspect]
     Active Substance: NATALIZUMAB
     Dosage: INFUSED OVER 1 HOUR
     Route: 042
     Dates: start: 20190917
  4. TYSABRI [Suspect]
     Active Substance: NATALIZUMAB
     Dosage: INFUSED OVER 1 HOUR
     Route: 042
  5. TYSABRI [Suspect]
     Active Substance: NATALIZUMAB
     Dosage: INFUSED OVER 1 HOUR
     Route: 042
     Dates: start: 20200314
  6. TYSABRI [Suspect]
     Active Substance: NATALIZUMAB
     Dosage: INFUSED OVER 1 HOUR
     Route: 042
     Dates: start: 202009, end: 2020
  7. TYSABRI [Suspect]
     Active Substance: NATALIZUMAB
     Dosage: INFUSED OVER 1 HOUR
     Route: 042
     Dates: start: 20190917, end: 20200625
  8. TYSABRI [Suspect]
     Active Substance: NATALIZUMAB
     Dosage: INFUSED OVER 1 HOUR
     Route: 042
     Dates: start: 201909, end: 20200625
  9. TYSABRI [Suspect]
     Active Substance: NATALIZUMAB
     Route: 065
     Dates: start: 201909, end: 20200625
  10. LIDOCAINE HYDROCHLORIDE [Suspect]
     Active Substance: LIDOCAINE HYDROCHLORIDE
     Indication: Trigeminal neuralgia
     Route: 065
  11. MAXOLON [Concomitant]
     Active Substance: METOCLOPRAMIDE HYDROCHLORIDE
     Indication: Product used for unknown indication
     Route: 065
  12. PANADOL [Concomitant]
     Active Substance: ACETAMINOPHEN
     Indication: Product used for unknown indication
     Route: 065
  13. NORTRIPTYLINE HYDROCHLORIDE [Concomitant]
     Active Substance: NORTRIPTYLINE HYDROCHLORIDE
     Indication: Product used for unknown indication
     Route: 065
  14. VITAMIN B3 [Concomitant]
     Active Substance: NIACIN
     Indication: Product used for unknown indication
     Route: 065
  15. Paxam (Clonazepam) [Concomitant]
     Indication: Product used for unknown indication
     Route: 065
  16. ENDEP [Concomitant]
     Active Substance: AMITRIPTYLINE HYDROCHLORIDE
     Indication: Product used for unknown indication
     Dosage: BEFORE BEDTIME
     Route: 065
  17. ENDEP [Concomitant]
     Active Substance: AMITRIPTYLINE HYDROCHLORIDE
     Dosage: BEFORE BEDTIME
     Route: 065
  18. FOLIC ACID [Concomitant]
     Active Substance: FOLIC ACID
     Indication: Product used for unknown indication
     Route: 048
  19. LITHIUM [Concomitant]
     Active Substance: LITHIUM
     Indication: Product used for unknown indication
     Dosage: 1/2 TAB MORNING AND 1 TABLET NIGHT
     Route: 048
  20. LEVOTHYROXINE SODIUM [Concomitant]
     Active Substance: LEVOTHYROXINE SODIUM
     Indication: Product used for unknown indication
     Dosage: TUESDAYS TO SUNDAYS
     Route: 065
  21. LEVOTHYROXINE SODIUM [Concomitant]
     Active Substance: LEVOTHYROXINE SODIUM
     Dosage: MONDAY
     Route: 065
  22. PANADEINE EXTRA [Concomitant]
     Indication: Product used for unknown indication
     Dosage: 500MG/15MG TAB (1-2 TABS EVERY 4-6 HOURS)
     Route: 065
  23. VITAMIN D [Concomitant]
     Active Substance: VITAMIN D NOS
     Indication: Product used for unknown indication
     Route: 065
  24. VITAMIN B12 [Concomitant]
     Active Substance: CYANOCOBALAMIN
     Indication: Product used for unknown indication
     Route: 065

REACTIONS (91)
  - Suicidal ideation [Recovered/Resolved]
  - Oral infection [Recovered/Resolved]
  - Pharyngitis [Recovered/Resolved]
  - Oral candidiasis [Not Recovered/Not Resolved]
  - Post-traumatic stress disorder [Not Recovered/Not Resolved]
  - Depression [Recovered/Resolved]
  - Arrhythmia [Unknown]
  - Hypotension [Unknown]
  - Heart sounds abnormal [Not Recovered/Not Resolved]
  - Sinus rhythm [Unknown]
  - Supraventricular extrasystoles [Unknown]
  - Photophobia [Not Recovered/Not Resolved]
  - Aphonia [Not Recovered/Not Resolved]
  - Musculoskeletal stiffness [Recovered/Resolved]
  - Multiple sclerosis relapse [Not Recovered/Not Resolved]
  - Oropharyngeal pain [Not Recovered/Not Resolved]
  - Urine odour abnormal [Not Recovered/Not Resolved]
  - Stress [Not Recovered/Not Resolved]
  - Emotional distress [Not Recovered/Not Resolved]
  - Pain in extremity [Not Recovered/Not Resolved]
  - Ovarian cyst [Not Recovered/Not Resolved]
  - Body temperature increased [Not Recovered/Not Resolved]
  - Body temperature fluctuation [Unknown]
  - Paranasal sinus discomfort [Unknown]
  - Pallor [Unknown]
  - Cough [Not Recovered/Not Resolved]
  - Dysphonia [Unknown]
  - Abdominal discomfort [Unknown]
  - Diarrhoea [Not Recovered/Not Resolved]
  - Night sweats [Recovered/Resolved]
  - Malaise [Recovered/Resolved]
  - Dyspnoea [Unknown]
  - Peripheral swelling [Recovered/Resolved]
  - Pain [Recovered/Resolved]
  - Skin discolouration [Not Recovered/Not Resolved]
  - Mental impairment [Not Recovered/Not Resolved]
  - Demyelination [Not Recovered/Not Resolved]
  - Spinal cord disorder [Unknown]
  - Prescribed underdose [Recovered/Resolved]
  - Rhinorrhoea [Not Recovered/Not Resolved]
  - Off label use [Recovered/Resolved]
  - Blood oestrogen decreased [Not Recovered/Not Resolved]
  - Neuropathy peripheral [Unknown]
  - Lacrimation increased [Unknown]
  - Drug interaction [Unknown]
  - Raynaud^s phenomenon [Unknown]
  - Neuralgia [Unknown]
  - Alopecia [Not Recovered/Not Resolved]
  - Memory impairment [Not Recovered/Not Resolved]
  - Gastrointestinal disorder [Not Recovered/Not Resolved]
  - Motor dysfunction [Not Recovered/Not Resolved]
  - Paraesthesia [Not Recovered/Not Resolved]
  - Palpitations [Unknown]
  - Hemianaesthesia [Not Recovered/Not Resolved]
  - Pupils unequal [Recovered/Resolved]
  - Hyperaesthesia [Not Recovered/Not Resolved]
  - Hypoaesthesia [Not Recovered/Not Resolved]
  - Nasal congestion [Not Recovered/Not Resolved]
  - Localised oedema [Not Recovered/Not Resolved]
  - Muscle spasms [Not Recovered/Not Resolved]
  - Heart rate increased [Not Recovered/Not Resolved]
  - Abdominal pain [Not Recovered/Not Resolved]
  - Poor quality sleep [Not Recovered/Not Resolved]
  - Impulsive behaviour [Not Recovered/Not Resolved]
  - Reflexes abnormal [Not Recovered/Not Resolved]
  - Musculoskeletal disorder [Not Recovered/Not Resolved]
  - Multiple sclerosis [Not Recovered/Not Resolved]
  - Skin mass [Not Recovered/Not Resolved]
  - Disability assessment scale score decreased [Not Recovered/Not Resolved]
  - Neurological examination abnormal [Not Recovered/Not Resolved]
  - Muscle spasms [Recovered/Resolved]
  - Fatigue [Not Recovered/Not Resolved]
  - Rash [Not Recovered/Not Resolved]
  - Headache [Not Recovered/Not Resolved]
  - Infusion related reaction [Unknown]
  - Dizziness [Unknown]
  - Asthenia [Unknown]
  - Feeling abnormal [Not Recovered/Not Resolved]
  - Limb deformity [Recovered/Resolved]
  - Carotid pulse abnormal [Unknown]
  - Cardiovascular symptom [Unknown]
  - Confusional state [Recovered/Resolved]
  - Neurological symptom [Unknown]
  - Rheumatoid arthritis [Not Recovered/Not Resolved]
  - Sacroiliac joint dysfunction [Not Recovered/Not Resolved]
  - Nausea [Recovered/Resolved]
  - Hypersensitivity [Unknown]
  - Vomiting [Recovered/Resolved]
  - Pyrexia [Recovered/Resolved]
  - Chills [Not Recovered/Not Resolved]
  - Arthralgia [Recovered/Resolved]

NARRATIVE: CASE EVENT DATE: 20190101
